FAERS Safety Report 24035059 (Version 1)
Quarter: 2024Q3

REPORT INFORMATION
  Report Type: Spontaneous
  Country: SD (occurrence: SD)
  Receive Date: 20240701
  Receipt Date: 20240701
  Transmission Date: 20241017
  Serious: Yes (Life-Threatening, Hospitalization, Other)
  Sender: PFIZER
  Company Number: SD-PFIZER INC-PV202400084810

PATIENT
  Age: 58 Year
  Sex: Male
  Weight: 80 kg

DRUGS (6)
  1. HYDROCORTISONE SODIUM SUCCINATE [Suspect]
     Active Substance: HYDROCORTISONE SODIUM SUCCINATE
     Indication: Asthmatic crisis
     Dosage: 1 G HIGH DOSE
     Route: 042
  2. EPINEPHRINE [Suspect]
     Active Substance: EPINEPHRINE
     Indication: Asthmatic crisis
     Dosage: 1 MG EVERY 20^ FOR 2 H
     Route: 045
  3. AMINOPHYLLINE [Suspect]
     Active Substance: AMINOPHYLLINE
     Indication: Asthmatic crisis
     Dosage: 240 MG
     Route: 042
  4. MAGNESIUM SULFATE [Suspect]
     Active Substance: MAGNESIUM SULFATE\MAGNESIUM SULFATE HEPTAHYDRATE
     Indication: Asthmatic crisis
     Dosage: 2 G
     Route: 042
  5. KETAMINE [Suspect]
     Active Substance: KETAMINE
     Indication: Asthmatic crisis
     Dosage: 100 MG
     Route: 042
  6. ALBUTEROL [Concomitant]
     Active Substance: ALBUTEROL
     Indication: Asthmatic crisis
     Dosage: 5 MG EVERY 20^ FOR 2 H (NEBULIZERS)
     Route: 045

REACTIONS (1)
  - Drug ineffective [Recovered/Resolved]
